FAERS Safety Report 6387784-0 (Version None)
Quarter: 2009Q4

REPORT INFORMATION
  Report Type: 
  Country: None (occurrence: None)
  Receive Date: 20091005
  Receipt Date: 20090922
  Transmission Date: 20100525
  Serious: Yes (Disabling)
  Sender: FDA-Public Use
  Company Number: AR-ROCHE-657999

PATIENT
  Age: 52 Year
  Sex: Male

DRUGS (4)
  1. PEGASYS [Suspect]
     Indication: HEPATITIS C
     Dosage: FREQUENCY: DAILY.
     Route: 042
     Dates: start: 20090201
  2. DICLOFENAC/PARACETAMOL [Concomitant]
  3. CORTICOSTEROIDS [Concomitant]
     Dosage: DRUG NAME REPORTED AS:
     Route: 042
  4. ERYTHROPOIETINE [Concomitant]

REACTIONS (5)
  - ANAEMIA [None]
  - BLOOD CREATINE PHOSPHOKINASE INCREASED [None]
  - DISABILITY [None]
  - MUSCULAR WEAKNESS [None]
  - MYALGIA [None]
